FAERS Safety Report 7293903-4 (Version None)
Quarter: 2011Q1

REPORT INFORMATION
  Report Type: 
  Country: None (occurrence: None)
  Receive Date: 20110215
  Receipt Date: 20110211
  Transmission Date: 20110831
  Serious: Yes (Hospitalization)
  Sender: FDA-Public Use
  Company Number: FR-ABBOTT-04P-056-0276690-00

PATIENT
  Age: 34 Year
  Sex: Male

DRUGS (11)
  1. PARKINANE [Concomitant]
     Indication: PARKINSON'S DISEASE
     Route: 048
  2. DEPAKENE [Suspect]
     Indication: EPILEPSY
     Dosage: 2500MG DAILY
     Route: 048
     Dates: start: 19720101
  3. LEXOMIL [Concomitant]
     Indication: PRODUCT USED FOR UNKNOWN INDICATION
     Route: 048
  4. NEURONTIN [Concomitant]
     Indication: EPILEPSY
     Route: 048
     Dates: start: 19720101
  5. VALIUM [Concomitant]
     Indication: PRODUCT USED FOR UNKNOWN INDICATION
     Route: 054
  6. TEGRETOL [Concomitant]
     Indication: EPILEPSY
     Route: 048
  7. NEULEPTIL [Concomitant]
     Indication: ABNORMAL BEHAVIOUR
     Route: 048
  8. TERCIAN [Concomitant]
     Indication: PRODUCT USED FOR UNKNOWN INDICATION
     Route: 030
  9. DEPAKENE [Suspect]
     Dosage: 2000MG DAILY, 4 IN 1 DAY
     Route: 048
  10. FLUPHENAZINE DECANOATE [Concomitant]
     Indication: PRODUCT USED FOR UNKNOWN INDICATION
     Route: 030
  11. RIVOTRIL [Concomitant]
     Indication: EPILEPSY
     Route: 048

REACTIONS (10)
  - LACERATION [None]
  - PLATELET AGGREGATION DECREASED [None]
  - DRUG EFFECT DECREASED [None]
  - ANTICONVULSANT DRUG LEVEL INCREASED [None]
  - VON WILLEBRAND'S DISEASE [None]
  - FALL [None]
  - WOUND HAEMORRHAGE [None]
  - COAGULATION FACTOR DECREASED [None]
  - RENAL DISORDER [None]
  - CONVULSION [None]
